FAERS Safety Report 6342592-1 (Version None)
Quarter: 2009Q3

REPORT INFORMATION
  Report Type: 
  Country: None (occurrence: None)
  Receive Date: 20090908
  Receipt Date: 20051114
  Transmission Date: 20100115
  Serious: No
  Sender: FDA-Public Use
  Company Number: JP-ROCHE-426031

PATIENT
  Sex: Male
  Weight: 3.7 kg

DRUGS (2)
  1. OSELTAMIVIR [Suspect]
     Dates: start: 20050217, end: 20050219
  2. GENERIC UNKNOWN [Concomitant]
     Indication: COUGH
     Dosage: DOSAGE REGIMEN: 7.5GRAMS.  REPORTED AS: SHOUSEI RYUUTO (HERBAL MEDICINE).
     Dates: start: 20050216, end: 20050218

REACTIONS (2)
  - DRUG EXPOSURE DURING PREGNANCY [None]
  - NORMAL NEWBORN [None]
